FAERS Safety Report 6707897-0 (Version None)
Quarter: 2010Q2

REPORT INFORMATION
  Report Type: 
  Country: None (occurrence: None)
  Receive Date: 20100503
  Receipt Date: 20090520
  Transmission Date: 20101027
  Serious: No
  Sender: FDA-Public Use
  Company Number: US-ASTRAZENECA-2009UW13044

PATIENT
  Age: 67 Year
  Sex: Female
  Weight: 56.7 kg

DRUGS (8)
  1. NEXIUM [Suspect]
     Route: 048
     Dates: end: 20090501
  2. NEXIUM [Suspect]
     Route: 048
     Dates: start: 20090501
  3. LYRICA [Concomitant]
  4. ZYRTEC [Concomitant]
  5. PEPCID [Concomitant]
  6. SOMA [Concomitant]
  7. ULTRAM [Concomitant]
  8. TYLENOL-500 [Concomitant]

REACTIONS (4)
  - ARTERIAL DISORDER [None]
  - BACK PAIN [None]
  - BLOOD GLUCOSE INCREASED [None]
  - MULTIPLE FRACTURES [None]
